FAERS Safety Report 4401090-2 (Version None)
Quarter: 2004Q3

REPORT INFORMATION
  Report Type: 
  Country: None (occurrence: None)
  Receive Date: 20040907
  Receipt Date: 20031006
  Transmission Date: 20050211
  Serious: No
  Sender: FDA-Public Use
  Company Number: US-BRISTOL-MYERS SQUIBB COMPANY-12418802

PATIENT
  Age: 56 Year
  Sex: Male
  Weight: 66 kg

DRUGS (1)
  1. COUMADIN [Suspect]
     Indication: THROMBOPHLEBITIS
     Dosage: DOSE VALUE: 2.5 MG FIVE TIMES A WEEK, ALTERNATING WITH 5 MG THE OTHER TWO DAYS.
     Route: 048
     Dates: start: 20030207

REACTIONS (2)
  - MUSCLE TWITCHING [None]
  - PHARYNGOLARYNGEAL PAIN [None]
